FAERS Safety Report 4876361-6 (Version None)
Quarter: 2005Q4

REPORT INFORMATION
  Report Type: 
  Country: None (occurrence: None)
  Receive Date: 20051206
  Receipt Date: 20050805
  Transmission Date: 20060501
  Serious: No
  Sender: FDA-Public Use
  Company Number: USA0508104720

PATIENT
  Age: 48 Year
  Sex: Female
  Weight: 50 kg

DRUGS (3)
  1. CYMBALTA [Suspect]
     Indication: FIBROMYALGIA
     Dosage: 60 MG DAY
     Dates: start: 20050501, end: 20050802
  2. CLONAZEPAM [Concomitant]
  3. CLIMARA [Concomitant]

REACTIONS (16)
  - ABDOMINAL DISTENSION [None]
  - ANXIETY [None]
  - CONSTIPATION [None]
  - DIZZINESS [None]
  - EXCITABILITY [None]
  - FEELING DRUNK [None]
  - HOT FLUSH [None]
  - HYPERHIDROSIS [None]
  - INSOMNIA [None]
  - MALAISE [None]
  - MIGRAINE [None]
  - MUSCULAR WEAKNESS [None]
  - NAUSEA [None]
  - NERVOUSNESS [None]
  - TREMOR [None]
  - WEIGHT INCREASED [None]
